FAERS Safety Report 5743601-0 (Version None)
Quarter: 2008Q2

REPORT INFORMATION
  Report Type: 
  Country: None (occurrence: None)
  Receive Date: 20080519
  Receipt Date: 20080519
  Transmission Date: 20081010
  Serious: Yes (Life-Threatening, Hospitalization, Disabling, Other)
  Sender: FDA-Public Use
  Company Number: None

PATIENT
  Age: 32 Year
  Sex: Female
  Weight: 61.2356 kg

DRUGS (3)
  1. ABILIFY [Suspect]
     Dosage: PO
     Route: 048
  2. WELLBUTRIN [Concomitant]
  3. PROPANANOL [Concomitant]

REACTIONS (4)
  - ANAPHYLACTIC REACTION [None]
  - NEUTROPENIA [None]
  - TARDIVE DYSKINESIA [None]
  - URTICARIA [None]
